FAERS Safety Report 13268809 (Version 1)
Quarter: 2017Q1

REPORT INFORMATION
  Report Type: Spontaneous
  Country: US (occurrence: US)
  Receive Date: 20170224
  Receipt Date: 20170224
  Transmission Date: 20170428
  Serious: No
  Sender: FDA-Public Use
  Company Number: US-VERTEX PHARMACEUTICALS-2017-000933

PATIENT
  Age: 13 Year
  Sex: Female

DRUGS (12)
  1. LANSOPRAZOLE. [Concomitant]
     Active Substance: LANSOPRAZOLE
     Dosage: 30 G, UNK
  2. PEG 3350 [Concomitant]
     Active Substance: POLYETHYLENE GLYCOL 3350
  3. TOBI [Concomitant]
     Active Substance: TOBRAMYCIN
     Dosage: 28 MG, UNK
  4. NASONEX [Concomitant]
     Active Substance: MOMETASONE FUROATE
  5. URSODIOL. [Concomitant]
     Active Substance: URSODIOL
     Dosage: 300 MG, UNK
  6. LEVALBUTEROL. [Concomitant]
     Active Substance: LEVALBUTEROL
     Dosage: 1.25 MG, UNK
  7. DEKAS PLUS [Concomitant]
  8. PULMOZYME [Concomitant]
     Active Substance: DORNASE ALFA
     Dosage: 2.5 MG, UNK
  9. ORKAMBI [Suspect]
     Active Substance: IVACAFTOR\LUMACAFTOR
     Indication: CYSTIC FIBROSIS
     Dosage: 400-250 MG, BID
     Route: 048
     Dates: start: 20160127
  10. XOPENEX HFA [Concomitant]
     Active Substance: LEVALBUTEROL TARTRATE
  11. DULERA [Concomitant]
     Active Substance: FORMOTEROL FUMARATE DIHYDRATE\MOMETASONE FUROATE
  12. ZENPEP [Concomitant]
     Active Substance: PANCRELIPASE AMYLASE\PANCRELIPASE LIPASE\PANCRELIPASE PROTEASE
     Dosage: UNK

REACTIONS (1)
  - Vomiting [Recovered/Resolved]

NARRATIVE: CASE EVENT DATE: 201702
